FAERS Safety Report 9808263 (Version 2)
Quarter: 2014Q1

REPORT INFORMATION
  Report Type: Spontaneous
  Country: US (occurrence: US)
  Receive Date: 20140110
  Receipt Date: 20140228
  Transmission Date: 20141002
  Serious: Yes (Death)
  Sender: FDA-Public Use
  Company Number: US-JNJFOC-20140105245

PATIENT
  Age: 68 Year
  Sex: Female

DRUGS (4)
  1. IMBRUVICA [Suspect]
     Indication: MANTLE CELL LYMPHOMA
     Route: 048
     Dates: start: 20131211
  2. ZOFRAN                             /00955301/ [Concomitant]
  3. OMEPRAZOLE [Concomitant]
  4. ACYCLOVIR                          /00587301/ [Concomitant]

REACTIONS (2)
  - Cardio-respiratory arrest [Fatal]
  - Disease progression [Not Recovered/Not Resolved]
